FAERS Safety Report 9271815 (Version 2)
Quarter: 2013Q2

REPORT INFORMATION
  Report Type: Spontaneous
  Country: JP (occurrence: JP)
  Receive Date: 20130506
  Receipt Date: 20130604
  Transmission Date: 20140414
  Serious: No
  Sender: FDA-Public Use
  Company Number: JP-UCBSA-085000

PATIENT
  Age: 60 Year
  Sex: Female

DRUGS (4)
  1. E KEPPRA [Suspect]
     Dosage: UNKNWN DOSE
     Route: 048
  2. E KEPPRA [Suspect]
     Route: 048
  3. DEPAKENE [Concomitant]
     Indication: CONVULSION
     Route: 048
  4. TOPINA [Concomitant]
     Indication: CONVULSION
     Route: 048

REACTIONS (1)
  - White blood cell count decreased [Unknown]
